FAERS Safety Report 12207174 (Version 1)
Quarter: 2016Q1

REPORT INFORMATION
  Report Type: Spontaneous
  Country: US (occurrence: None)
  Receive Date: 20160323
  Receipt Date: 20160323
  Transmission Date: 20160526
  Serious: Yes (Death, Hospitalization)
  Sender: FDA-Public Use
  Company Number: None

PATIENT
  Age: 57 Year
  Sex: Male
  Weight: 139 kg

DRUGS (7)
  1. LASIX [Concomitant]
     Active Substance: FUROSEMIDE
  2. HEPARIN [Concomitant]
     Active Substance: HEPARIN SODIUM
  3. ELIQUIS [Concomitant]
     Active Substance: APIXABAN
  4. CARDIZEM [Concomitant]
     Active Substance: DILTIAZEM HYDROCHLORIDE
  5. TIROFIBAN 5MG PER 100ML MEDICURE [Suspect]
     Active Substance: TIROFIBAN
     Indication: CATHETERISATION CARDIAC
     Dates: start: 20160106, end: 20160106
  6. LIPITOR [Concomitant]
     Active Substance: ATORVASTATIN CALCIUM
  7. ASA [Concomitant]
     Active Substance: ASPIRIN

REACTIONS (2)
  - Coronary artery occlusion [None]
  - Post procedural complication [None]

NARRATIVE: CASE EVENT DATE: 20160106
